FAERS Safety Report 17486650 (Version 1)
Quarter: 2020Q1

REPORT INFORMATION
  Report Type: Spontaneous
  Country: US (occurrence: US)
  Receive Date: 20200303
  Receipt Date: 20200303
  Transmission Date: 20200409
  Serious: Yes (Hospitalization, Other)
  Sender: FDA-Public Use
  Company Number: US-CIPLA LTD.-2020US01441

PATIENT

DRUGS (1)
  1. SEVELAMER [Suspect]
     Active Substance: SEVELAMER
     Indication: PRODUCT USED FOR UNKNOWN INDICATION
     Dosage: UNK
     Route: 065

REACTIONS (5)
  - Haematochezia [Recovered/Resolved]
  - Large intestinal ulcer [Recovered/Resolved]
  - Crystal deposit intestine [Recovered/Resolved]
  - Haemodynamic instability [Recovered/Resolved]
  - Gastrointestinal haemorrhage [Recovered/Resolved]
